FAERS Safety Report 16924081 (Version 2)
Quarter: 2019Q4

REPORT INFORMATION
  Report Type: Spontaneous
  Country: US (occurrence: US)
  Receive Date: 20191016
  Receipt Date: 20191106
  Transmission Date: 20200122
  Serious: No
  Sender: FDA-Public Use
  Company Number: US-BAYER-2019-182378

PATIENT
  Age: 58 Year
  Sex: Male
  Weight: 73.47 kg

DRUGS (3)
  1. CLARITIN [Suspect]
     Active Substance: LORATADINE
     Indication: HYPERSENSITIVITY
     Dosage: 1 OR 2 TABLETS, QD
     Route: 048
     Dates: start: 201908, end: 201910
  2. CLARITIN [Suspect]
     Active Substance: LORATADINE
     Indication: NASOPHARYNGITIS
  3. VITAMIN D [VITAMIN D NOS] [Concomitant]
     Active Substance: VITAMIN D NOS

REACTIONS (2)
  - Extra dose administered [Unknown]
  - Drug ineffective [None]

NARRATIVE: CASE EVENT DATE: 2019
